FAERS Safety Report 25927926 (Version 8)
Quarter: 2025Q4

REPORT INFORMATION
  Report Type: Report from Study
  Country: CN (occurrence: CN)
  Receive Date: 20251016
  Receipt Date: 20251209
  Transmission Date: 20260118
  Serious: Yes (Hospitalization, Other)
  Sender: BAXTER
  Company Number: CN-BAXTER-2025BAX022502

PATIENT
  Age: 69 Year
  Sex: Female
  Weight: 58.5 kg

DRUGS (20)
  1. CYCLOPHOSPHAMIDE [Suspect]
     Active Substance: CYCLOPHOSPHAMIDE
     Indication: Diffuse large B-cell lymphoma
     Dosage: 750 MG/M2, EVERY 3 WK
     Route: 042
     Dates: start: 20250929, end: 20250929
  2. RITUXIMAB [Suspect]
     Active Substance: RITUXIMAB
     Indication: Diffuse large B-cell lymphoma
     Dosage: 375 MG/M2, EVERY 3 WK
     Route: 042
     Dates: start: 20250929, end: 20250929
  3. VINCRISTINE [Suspect]
     Active Substance: VINCRISTINE
     Indication: Diffuse large B-cell lymphoma
     Dosage: 1.4 MG/M2, EVERY 3 WK
     Route: 042
     Dates: start: 20250930, end: 20250930
  4. DOXORUBICIN [Suspect]
     Active Substance: DOXORUBICIN
     Indication: Diffuse large B-cell lymphoma
     Dosage: 50 MG/M2, EVERY 3 WK
     Route: 042
     Dates: start: 20250930, end: 20250930
  5. PREDNISONE [Suspect]
     Active Substance: PREDNISONE
     Indication: Diffuse large B-cell lymphoma
     Dosage: 100 MG, QD ON DAYS 1 TO DAY 5 OF EVERY Q3W CYCLE, CYCLICAL
     Route: 048
     Dates: start: 20250929, end: 20250930
  6. PREDNISONE [Suspect]
     Active Substance: PREDNISONE
     Dosage: 100 MG 100 MG, QD ON DAYS 1 TO 5 Q3W, CYCLICAL
     Route: 048
     Dates: start: 20251001, end: 20251003
  7. ENTECAVIR [Concomitant]
     Active Substance: ENTECAVIR
     Indication: Hepatitis B core antibody positive
     Dosage: 0.5 MG, QD (EVERY 1 DAYS)
     Route: 065
     Dates: start: 20250918
  8. OXYCODONE HYDROCHLORIDE [Concomitant]
     Active Substance: OXYCODONE HYDROCHLORIDE
     Indication: Analgesic therapy
     Dosage: 10 MG, PRN (AS NECESSARY) (STRENGTH: 10 MG)
     Route: 065
     Dates: start: 20250922, end: 20250927
  9. OXYCODONE HYDROCHLORIDE [Concomitant]
     Active Substance: OXYCODONE HYDROCHLORIDE
     Dosage: 30 MG, BID (2/DAYS) (STRENGTH: 30 MG)
     Route: 065
     Dates: start: 20250928, end: 20250930
  10. AMLODIPINE [Concomitant]
     Active Substance: AMLODIPINE BESYLATE
     Indication: Blood pressure increased
     Dosage: 5 MG, ONCE, TOTAL
     Route: 065
     Dates: start: 20250928, end: 20250928
  11. CAPTOPRIL [Concomitant]
     Active Substance: CAPTOPRIL
     Indication: Blood pressure increased
     Dosage: 12.5 MG, BID (2/DAYS)
     Route: 065
     Dates: start: 20250929, end: 20250929
  12. PALONOSETRON HYDROCHLORIDE [Concomitant]
     Active Substance: PALONOSETRON HYDROCHLORIDE
     Indication: Prophylaxis of nausea and vomiting
     Dosage: 0.5 MG DAILY, FREQ: QD, STRENGTH 0.5 MG, EVERY 1 DAYS
     Route: 065
     Dates: start: 20250929, end: 20250929
  13. DIPHENHYDRAMINE HYDROCHLORIDE [Concomitant]
     Active Substance: DIPHENHYDRAMINE HYDROCHLORIDE
     Indication: Allergy prophylaxis
     Dosage: 20 MG, QD (EVERY 1 DAYS)
     Route: 065
     Dates: start: 20250929, end: 20250929
  14. ACETAMINOPHEN\CAFFEINE [Concomitant]
     Active Substance: ACETAMINOPHEN\CAFFEINE
     Indication: Analgesic therapy
     Dosage: 565 MG, QD (EVERY 1 DAYS)
     Route: 065
     Dates: start: 20250929, end: 20250929
  15. ACETAMINOPHEN\CAFFEINE [Concomitant]
     Active Substance: ACETAMINOPHEN\CAFFEINE
     Indication: Pyrexia
  16. TRAMADOL HYDROCHLORIDE [Concomitant]
     Active Substance: TRAMADOL HYDROCHLORIDE
     Indication: Product used for unknown indication
     Dosage: 100 MG, QD (EVERY 1 DAYS)
     Route: 065
     Dates: start: 20250930, end: 20250930
  17. MORPHINE HYDROCHLORIDE [Concomitant]
     Active Substance: MORPHINE HYDROCHLORIDE
     Indication: Product used for unknown indication
     Dosage: 5 MG, QD  (EVERY 1 DAYS)
     Route: 065
     Dates: start: 20250930, end: 20250930
  18. DEXRAZOXANE HYDROCHLORIDE [Concomitant]
     Active Substance: DEXRAZOXANE HYDROCHLORIDE
     Indication: Cardiotoxicity
     Dosage: 750 MG, QD (EVERY 1 DAYS)
     Route: 065
     Dates: start: 20250930, end: 20250930
  19. Metoclopramide dihydrochloride monohydrate [Concomitant]
     Indication: Vomiting
     Dosage: 10 MG, QD (EVERY 1 DAYS)
     Route: 065
     Dates: start: 20250929, end: 20250929
  20. Vitamin d nos;Vitamin k nos [Concomitant]
     Indication: Blood calcium increased
     Dosage: 1 DOSAGE FORM, QD
     Route: 065
     Dates: start: 20250926

REACTIONS (2)
  - Pathological fracture [Not Recovered/Not Resolved]
  - Febrile neutropenia [Recovered/Resolved]

NARRATIVE: CASE EVENT DATE: 20250930
